FAERS Safety Report 25199207 (Version 2)
Quarter: 2025Q2

REPORT INFORMATION
  Report Type: Spontaneous
  Country: GB (occurrence: GB)
  Receive Date: 20250415
  Receipt Date: 20250508
  Transmission Date: 20250717
  Serious: Yes (Other)
  Sender: AUROBINDO
  Company Number: GB-MHRA-MED-202504040929271230-JMQPN

PATIENT
  Age: 62 Year
  Sex: Male
  Weight: 63 kg

DRUGS (1)
  1. MIRTAZAPINE [Suspect]
     Active Substance: MIRTAZAPINE
     Indication: Anxiety
     Route: 065
     Dates: start: 20240818

REACTIONS (3)
  - Orthostatic hypotension [Not Recovered/Not Resolved]
  - Orthostatic heart rate response increased [Not Recovered/Not Resolved]
  - Product use in unapproved indication [Unknown]

NARRATIVE: CASE EVENT DATE: 20240818
